FAERS Safety Report 9449524 (Version 1)
Quarter: 2013Q3

REPORT INFORMATION
  Report Type: Spontaneous
  Country: US (occurrence: US)
  Receive Date: 20130809
  Receipt Date: 20130809
  Transmission Date: 20140515
  Serious: No
  Sender: FDA-Public Use
  Company Number: US-009507513-1308USA003057

PATIENT
  Age: 31 Year
  Sex: Female

DRUGS (3)
  1. NEXPLANON [Suspect]
     Indication: CONTRACEPTION
     Dosage: UNK
     Dates: start: 20130501
  2. ZOLOFT [Concomitant]
  3. BUSPAR [Concomitant]

REACTIONS (2)
  - Menorrhagia [Unknown]
  - Menstrual disorder [Unknown]
